FAERS Safety Report 5627969-1 (Version None)
Quarter: 2008Q1

REPORT INFORMATION
  Report Type: 
  Country: None (occurrence: None)
  Receive Date: 20080215
  Receipt Date: 20080213
  Transmission Date: 20080703
  Serious: Yes (Other)
  Sender: FDA-Public Use
  Company Number: GB-BRISTOL-MYERS SQUIBB COMPANY-13807821

PATIENT
  Age: 32 Year
  Sex: Female

DRUGS (5)
  1. ABILIFY [Suspect]
     Indication: SCHIZOPHRENIA
     Dosage: DOSE REDUCED TO 5MG/D ON 7JUN07
     Route: 048
     Dates: start: 20050915, end: 20070614
  2. DIAZEPAM [Concomitant]
     Route: 048
  3. FLUOXETINE HCL [Concomitant]
     Dosage: REDUCED TO 20 MG DAILY ON 14-JUN-2007.
     Route: 048
  4. TRAZODONE HCL [Concomitant]
     Route: 048
  5. NORTRIPTYLINE HCL [Concomitant]
     Indication: DEPRESSION
     Route: 048

REACTIONS (2)
  - INTRA-UTERINE DEATH [None]
  - PREGNANCY [None]
